APPROVED DRUG PRODUCT: CLARITHROMYCIN
Active Ingredient: CLARITHROMYCIN
Strength: 250MG
Dosage Form/Route: TABLET;ORAL
Application: A065195 | Product #001
Applicant: PHARMOBEDIENT CONSULTING LLC
Approved: Mar 11, 2005 | RLD: No | RS: No | Type: DISCN